FAERS Safety Report 10108575 (Version 1)
Quarter: 2014Q2

REPORT INFORMATION
  Report Type: Report from Study
  Country: US (occurrence: US)
  Receive Date: 20140425
  Receipt Date: 20140425
  Transmission Date: 20141212
  Serious: Yes (Hospitalization, Other)
  Sender: FDA-Public Use
  Company Number: US-ROCHE-1383772

PATIENT
  Age: 12 Year
  Sex: Male
  Weight: 41.8 kg

DRUGS (11)
  1. NUTROPIN AQ [Suspect]
     Indication: RENAL FAILURE CHRONIC
     Dosage: 20 MG/2ML
     Route: 058
  2. CELLCEPT [Suspect]
     Indication: RENAL TRANSPLANT
     Route: 048
  3. CELLCEPT [Suspect]
     Dosage: 500 MG TOTAL, 200 MG/ML
     Route: 048
  4. PROGRAF [Concomitant]
     Route: 048
  5. PROGRAF [Concomitant]
     Route: 048
  6. LIPITOR [Concomitant]
     Dosage: HALF TABLET
     Route: 065
     Dates: start: 20140211
  7. CHOLECALCIFEROL [Concomitant]
     Dosage: 2000 UNITS
     Route: 048
     Dates: start: 20131218
  8. FERROUS SULFATE [Concomitant]
     Route: 048
  9. PRINIVIL [Concomitant]
     Route: 048
     Dates: start: 20131003
  10. MAG OXIDE [Concomitant]
     Route: 048
  11. ZANTAC [Concomitant]
     Route: 048

REACTIONS (2)
  - Blood creatinine increased [Unknown]
  - Toxicity to various agents [Unknown]
